FAERS Safety Report 10200703 (Version 1)
Quarter: 2014Q2

REPORT INFORMATION
  Report Type: Spontaneous
  Country: US (occurrence: US)
  Receive Date: 20140528
  Receipt Date: 20140528
  Transmission Date: 20141212
  Serious: No
  Sender: FDA-Public Use
  Company Number: US-ASTRAZENECA-2014SE35399

PATIENT
  Age: 68 Year
  Sex: Female

DRUGS (3)
  1. CRESTOR [Suspect]
     Route: 048
     Dates: start: 201403, end: 201405
  2. AMBIEN [Concomitant]
     Indication: SLEEP DISORDER
     Dosage: UNKNOWN UNK
  3. SYNTHROID [Concomitant]
     Dosage: UNKNOWN UNK

REACTIONS (2)
  - Fatigue [Unknown]
  - Contusion [Unknown]
